FAERS Safety Report 6962524-2 (Version None)
Quarter: 2010Q3

REPORT INFORMATION
  Report Type: 
  Country: None (occurrence: None)
  Receive Date: 20100831
  Receipt Date: 20100825
  Transmission Date: 20110219
  Serious: Yes (Hospitalization)
  Sender: FDA-Public Use
  Company Number: 1000015932

PATIENT
  Age: 77 Year
  Sex: Male

DRUGS (1)
  1. LEXAPRO [Suspect]
     Indication: DEPRESSION
     Dosage: 10 MG (10 MG, 1 IN 1 D) ORAL
     Route: 048

REACTIONS (3)
  - DRY MOUTH [None]
  - NORMAL PRESSURE HYDROCEPHALUS [None]
  - PRODUCTIVE COUGH [None]
